FAERS Safety Report 14020716 (Version 1)
Quarter: 2017Q3

REPORT INFORMATION
  Report Type: Spontaneous
  Country: US (occurrence: US)
  Receive Date: 20170928
  Receipt Date: 20170928
  Transmission Date: 20171128
  Serious: No
  Sender: FDA-Public Use
  Company Number: US-GLAXOSMITHKLINE-US2017148590

PATIENT

DRUGS (1)
  1. ABREVA [Suspect]
     Active Substance: DOCOSANOL
     Indication: ORAL HERPES
     Dosage: UNK

REACTIONS (7)
  - Condition aggravated [Unknown]
  - Application site pain [Unknown]
  - Application site reaction [Unknown]
  - Oral pain [Unknown]
  - Drug ineffective [Unknown]
  - Oral herpes [Unknown]
  - Application site warmth [Unknown]
